FAERS Safety Report 18396208 (Version 1)
Quarter: 2020Q4

REPORT INFORMATION
  Report Type: Spontaneous
  Country: US (occurrence: US)
  Receive Date: 20201019
  Receipt Date: 20201019
  Transmission Date: 20210114
  Serious: Yes (Death)
  Sender: FDA-Public Use
  Company Number: US-ROCHE-2695552

PATIENT
  Sex: Male

DRUGS (8)
  1. IRON [Concomitant]
     Active Substance: IRON
  2. ADVIL [Concomitant]
     Active Substance: IBUPROFEN
  3. LEVOTHYROXINE SODIUM. [Concomitant]
     Active Substance: LEVOTHYROXINE SODIUM
  4. THERAWORX RELIEF [Concomitant]
  5. MOTRIN [Concomitant]
     Active Substance: IBUPROFEN
  6. ASPIRIN. [Concomitant]
     Active Substance: ASPIRIN
  7. PREDNISONE. [Concomitant]
     Active Substance: PREDNISONE
  8. ERIVEDGE [Suspect]
     Active Substance: VISMODEGIB
     Indication: SKIN CANCER
     Route: 048

REACTIONS (1)
  - Death [Fatal]
